FAERS Safety Report 24083374 (Version 2)
Quarter: 2024Q3

REPORT INFORMATION
  Report Type: Spontaneous
  Country: US (occurrence: US)
  Receive Date: 20240712
  Receipt Date: 20240712
  Transmission Date: 20241017
  Serious: Yes (Hospitalization)
  Sender: ROCHE
  Company Number: US-ROCHE-10000024345

PATIENT
  Sex: Female

DRUGS (1)
  1. OCREVUS [Suspect]
     Active Substance: OCRELIZUMAB
     Indication: Product used for unknown indication
     Dosage: SECOND HALF 150 MG ON 09/JUL/2024
     Route: 065
     Dates: start: 20240625

REACTIONS (2)
  - Heart rate increased [Unknown]
  - Atrial flutter [Unknown]
